FAERS Safety Report 8214147-5 (Version None)
Quarter: 2012Q1

REPORT INFORMATION
  Report Type: 
  Country: None (occurrence: None)
  Receive Date: 20120314
  Receipt Date: 20120314
  Transmission Date: 20120608
  Serious: Yes (Hospitalization)
  Sender: FDA-Public Use
  Company Number: None

PATIENT
  Age: 66 Year
  Sex: Male
  Weight: 81.8 kg

DRUGS (9)
  1. FINASTERIDE [Concomitant]
  2. LASIX [Concomitant]
  3. INDOMETHACIN [Suspect]
     Indication: GOUT
     Dosage: PO  RECENT
     Route: 048
  4. DIOVAN HCT [Concomitant]
  5. CRESTOR [Concomitant]
  6. ACTOS [Concomitant]
  7. FLOMAX [Concomitant]
  8. NEXIUM [Concomitant]
  9. GLIPIZIDE [Concomitant]

REACTIONS (3)
  - HYPERGLYCAEMIA [None]
  - DIVERTICULUM [None]
  - POLYP [None]
